FAERS Safety Report 8776755 (Version 2)
Quarter: 2012Q4

REPORT INFORMATION
  Report Type: 
  Country: US (occurrence: US)
  Receive Date: 20120908
  Receipt Date: 20120908
  Transmission Date: 20130627
  Serious: Yes (Hospitalization)
  Sender: FDA-Public Use
  Company Number: PHEH2012US013880

PATIENT
  Age: 64 Year
  Sex: Female
  Weight: 75.28 kg

DRUGS (17)
  1. GILENYA [Suspect]
     Indication: MULTIPLE SCLEROSIS
     Dosage: 0.5 mg, QD
     Route: 048
     Dates: start: 20120628, end: 201208
  2. AMBIEN [Concomitant]
     Dosage: UNK UKN, UNK
  3. AMITRIPTYLINE [Concomitant]
     Dosage: UNK UKN, UNK
  4. BACLOFEN [Concomitant]
     Dosage: UNK UKN, UNK
  5. CALCIUM W/COLECALCIFEROL [Concomitant]
     Dosage: UNK UKN, UNK
  6. DECADRAN [Concomitant]
     Dosage: UNK UKN, UNK
  7. DEPAKOTE [Concomitant]
     Dosage: UNK UKN, UNK
  8. HYDROCHLOROTHIAZIDE [Concomitant]
     Dosage: UNK UKN, UNK
  9. KLONOPIN [Concomitant]
     Dosage: UNK UKN, UNK
  10. LIDOCAIN [Concomitant]
     Dosage: UNK UKN, PRN
  11. LORTAB [Concomitant]
     Dosage: UNK UKN, UNK
  12. MAXALT [Concomitant]
     Dosage: UNK UKN, UNK
  13. MIGRENAL [Concomitant]
     Dosage: UNK UKN, UNK
  14. OXYBUTYNIN CHLORIDE [Concomitant]
     Dosage: UNK UKN, UNK
  15. PREMARIN [Concomitant]
     Dosage: UNK UKN, UNK
  16. PROZAC [Concomitant]
     Dosage: UNK UKN, UNK
  17. DEQUIP [Concomitant]
     Dosage: UNK UKN, UNK

REACTIONS (5)
  - Fall [Recovered/Resolved]
  - Head injury [Recovered/Resolved]
  - Stress [Recovered/Resolved]
  - Vision blurred [Recovered/Resolved]
  - Dizziness [Recovered/Resolved]
